FAERS Safety Report 4798958-4 (Version None)
Quarter: 2005Q4

REPORT INFORMATION
  Report Type: 
  Country: None (occurrence: None)
  Receive Date: 20051014
  Receipt Date: 20040819
  Transmission Date: 20060501
  Serious: Yes (Hospitalization)
  Sender: FDA-Public Use
  Company Number: FR-ABBOTT-04P-056-0271188-00

PATIENT
  Sex: Female
  Weight: 56 kg

DRUGS (36)
  1. HUMIRA [Suspect]
     Indication: CROHN'S DISEASE
     Route: 058
     Dates: start: 20040507, end: 20040827
  2. PENTASA [Concomitant]
     Indication: CROHN'S DISEASE
     Dates: start: 20010525, end: 20021201
  3. BUDESONIDE [Concomitant]
     Indication: CROHN'S DISEASE
     Dates: start: 20010712, end: 20011210
  4. AZATHIOPRINE [Concomitant]
     Indication: CROHN'S DISEASE
     Dates: start: 20020829, end: 20030701
  5. AZATHIOPRINE [Concomitant]
     Dates: start: 20030701, end: 20031101
  6. AZATHIOPRINE [Concomitant]
     Dates: start: 20031101
  7. INFLIXIMAB [Concomitant]
     Indication: CROHN'S DISEASE
     Dates: start: 20030723, end: 20030723
  8. INFLIXIMAB [Concomitant]
     Dosage: 5 MG/KG
     Route: 042
     Dates: start: 20031023, end: 20031023
  9. RIFAMPIN AND ISONIAZID [Concomitant]
     Indication: ANTIBIOTIC PROPHYLAXIS
     Dosage: ISONIAZIDE 150 MG AND RIFAMPICINE 300MG
     Route: 048
     Dates: start: 20040403, end: 20040702
  10. BETAMETHASONE DIPROPIONATE [Concomitant]
     Indication: PSORIASIS
     Route: 061
     Dates: start: 20040301
  11. PREDNISOLONE SODIUM PHOSPHATE [Concomitant]
     Indication: CROHN'S DISEASE
     Dates: start: 20030601, end: 20030901
  12. PREDNISOLONE SODIUM PHOSPHATE [Concomitant]
     Dates: start: 20011201, end: 20030601
  13. CLOBETASOL PROPIONATE [Concomitant]
     Indication: DERMATITIS INFECTED
     Dates: start: 20040927, end: 20041001
  14. COLDWAM WITH 10% UREA [Concomitant]
     Indication: PSORIASIS
     Dates: start: 20040927, end: 20041001
  15. ISOFLURANE [Concomitant]
     Indication: PSORIASIS
     Dates: start: 20040927, end: 20041001
  16. SALICYLIC ACID [Concomitant]
     Indication: PSORIASIS
     Dates: start: 20040927, end: 20041001
  17. METOCLOPRAMIDE [Concomitant]
     Indication: VOMITING
     Route: 048
     Dates: start: 20040401, end: 20040701
  18. METOCLOPRAMIDE [Concomitant]
     Dates: start: 20040927, end: 20041001
  19. DEPRODONE [Concomitant]
     Indication: PSORIASIS
     Route: 061
     Dates: start: 20040301
  20. PARACETAMOL [Concomitant]
     Indication: HEADACHE
     Dates: start: 20040601
  21. POVIDONE IODINE [Concomitant]
     Indication: DERMATITIS INFECTED
     Dates: start: 20040730
  22. POVIDONE IODINE [Concomitant]
     Dates: start: 20040730
  23. ERYTHROMYCIN [Concomitant]
     Indication: DERMATITIS INFECTED
     Dates: start: 20040730, end: 20040919
  24. ERYTHROMYCIN [Concomitant]
     Dates: start: 20040730
  25. EUGYNON [Concomitant]
     Indication: ORAL CONTRACEPTION
     Route: 048
     Dates: start: 20040728, end: 20040816
  26. EUGYNON [Concomitant]
     Route: 048
     Dates: start: 20041001
  27. EUGYNON [Concomitant]
     Route: 048
     Dates: start: 19990101
  28. JOSAMYCIN [Concomitant]
     Indication: DERMATITIS INFECTED
     Dates: start: 20040901, end: 20040901
  29. JOSAMYCIN [Concomitant]
     Dates: start: 20040730, end: 20040809
  30. PRISTINAMYCIN [Concomitant]
     Indication: DERMATITIS INFECTED
     Dates: start: 20040927, end: 20041001
  31. BICLOTYMOL [Concomitant]
     Indication: UNEVALUABLE EVENT
     Route: 055
     Dates: start: 20040722, end: 20040725
  32. FLURBIPROFEN [Concomitant]
     Indication: DYSMENORRHOEA
     Dates: start: 20040726, end: 20040726
  33. CEBIPROX [Concomitant]
     Indication: PSORIASIS
     Dates: start: 20040720, end: 20040730
  34. DIPROSALIC [Concomitant]
     Indication: PSORIASIS
     Dates: start: 20050720, end: 20050730
  35. ARSOR [Concomitant]
     Indication: DERMATITIS INFECTED
     Dates: start: 20040730, end: 20040801
  36. DIFLUCORTOLONE VALERATE [Concomitant]
     Indication: DERMATITIS INFECTED
     Dates: start: 20040730, end: 20040801

REACTIONS (3)
  - DRUG EXPOSURE DURING PREGNANCY [None]
  - ECTOPIC PREGNANCY [None]
  - HAEMORRHAGE [None]
